FAERS Safety Report 10530589 (Version 1)
Quarter: 2014Q4

REPORT INFORMATION
  Report Type: Spontaneous
  Country: IT (occurrence: None)
  Receive Date: 20141017
  Receipt Date: 20141017
  Transmission Date: 20150528
  Serious: Yes (Other)
  Sender: FDA-Public Use
  Company Number: 2574776

PATIENT
  Age: 59 Year
  Sex: Female

DRUGS (6)
  1. ARCOXIA [Concomitant]
     Active Substance: ETORICOXIB
  2. LANSOX [Concomitant]
     Active Substance: LANSOPRAZOLE
  3. BRONCOVALEAS [Concomitant]
     Active Substance: ALBUTEROL
  4. ALIFLUS [Concomitant]
     Active Substance: FLUTICASONE PROPIONATE\SALMETEROL XINAFOATE
  5. CLENIL [Concomitant]
     Active Substance: BECLOMETHASONE DIPROPIONATE
  6. CEFTRIAXONE SODIUM. [Suspect]
     Active Substance: CEFTRIAXONE SODIUM
     Indication: BRONCHITIS
     Dosage: 1 DF DOSAGE FORM, TOTAL, INTRAMUSCULAR
     Route: 030
     Dates: start: 20140924, end: 20140924

REACTIONS (1)
  - Drug hypersensitivity [None]

NARRATIVE: CASE EVENT DATE: 20140924
